FAERS Safety Report 4328165-0 (Version None)
Quarter: 2004Q1

REPORT INFORMATION
  Report Type: 
  Country: None (occurrence: None)
  Receive Date: 20040325
  Receipt Date: 20040310
  Transmission Date: 20041129
  Serious: Yes (Hospitalization, Other)
  Sender: FDA-Public Use
  Company Number: 701121

PATIENT
  Age: 70 Year
  Sex: Female

DRUGS (3)
  1. AMEVIVE [Suspect]
     Indication: PSORIASIS
     Dosage: 15 MG QW IM
     Route: 030
     Dates: start: 20030613, end: 20030724
  2. VASOTEC [Concomitant]
  3. DILTIAZEM [Concomitant]

REACTIONS (5)
  - AORTIC DISSECTION [None]
  - CARDIAC FAILURE CONGESTIVE [None]
  - CORONARY ARTERY DISEASE [None]
  - HYPERTENSION [None]
  - RENAL FAILURE [None]
